FAERS Safety Report 10290553 (Version 3)
Quarter: 2014Q3

REPORT INFORMATION
  Report Type: Report from Study
  Country: JP (occurrence: JP)
  Receive Date: 20140710
  Receipt Date: 20140924
  Transmission Date: 20150326
  Serious: Yes (Death, Life-Threatening)
  Sender: FDA-Public Use
  Company Number: JP-SA-2014SA090871

PATIENT
  Age: 22 Year
  Sex: Male
  Weight: 62.9 kg

DRUGS (32)
  1. ATARAX-P [Concomitant]
     Active Substance: HYDROXYZINE HYDROCHLORIDE
  2. PRIMPERAN [Concomitant]
     Active Substance: METOCLOPRAMIDE HYDROCHLORIDE
     Indication: CHEMOTHERAPY CYTOKINE PROPHYLAXIS
     Dates: start: 20110829, end: 20110909
  3. ZOVIRAX [Concomitant]
     Active Substance: ACYCLOVIR
     Indication: ANTIVIRAL PROPHYLAXIS
     Dates: start: 20110829, end: 20110908
  4. THYMOGLOBULINE [Suspect]
     Active Substance: LAPINE T-LYMPHOCYTE IMMUNE GLOBULIN
     Indication: BONE MARROW CONDITIONING REGIMEN
     Route: 042
     Dates: start: 20110901, end: 20110902
  5. FLUDARA [Suspect]
     Active Substance: FLUDARABINE PHOSPHATE
     Indication: BONE MARROW CONDITIONING REGIMEN
     Route: 065
     Dates: start: 20110829, end: 20110903
  6. FUNGUARD [Concomitant]
     Active Substance: MICAFUNGIN SODIUM
     Indication: ANTIFUNGAL PROPHYLAXIS
     Dates: start: 20110828, end: 20110910
  7. HYDROCORTONE [Concomitant]
     Active Substance: HYDROCORTISONE
     Indication: CHEMOTHERAPY CYTOKINE PROPHYLAXIS
     Dates: start: 20110830, end: 20110910
  8. PROGRAF [Concomitant]
     Active Substance: TACROLIMUS\TACROLIMUS ANHYDROUS
     Indication: LEUKAEMIA
     Dates: start: 20110904, end: 20110909
  9. ALL OTHER THERAPEUTIC PRODUCTS [Concomitant]
     Active Substance: UNSPECIFIED INGREDIENT
     Indication: PROPHYLAXIS
     Dates: start: 20110905, end: 20110906
  10. PREDONINE [Concomitant]
     Active Substance: PREDNISOLONE\PREDNISOLONE ACETATE\PREDNISOLONE SODIUM SUCCINATE
     Dates: start: 20101001, end: 20110909
  11. PROGRAF [Concomitant]
     Active Substance: TACROLIMUS\TACROLIMUS ANHYDROUS
     Indication: BONE MARROW CONDITIONING REGIMEN
     Dates: start: 20110904, end: 20110909
  12. NEOLAMIN MULTI [Concomitant]
     Indication: PROPHYLAXIS
     Dates: start: 20110909, end: 20110910
  13. URSO [Concomitant]
     Active Substance: URSODIOL
     Indication: LIVER DISORDER
     Dates: start: 20090824, end: 20110909
  14. DEPAS [Concomitant]
     Active Substance: ETIZOLAM
     Indication: DEPRESSION
     Dates: start: 20110125, end: 20110909
  15. POLARAMINE [Concomitant]
     Active Substance: DEXCHLORPHENIRAMINE MALEATE
     Indication: PROPHYLAXIS
     Dates: start: 20110904, end: 20110909
  16. CYANOCOBALAMIN/PYRIDOXINE HYDROCHLORIDE/THIAMINE DISULFIDE [Concomitant]
     Indication: PROPHYLAXIS
     Dates: start: 20110905, end: 20110906
  17. GLUCOSE [Concomitant]
     Active Substance: DEXTROSE
     Indication: PROPHYLAXIS
     Dates: start: 20110909, end: 20110910
  18. ALL OTHER THERAPEUTIC PRODUCTS [Concomitant]
     Active Substance: UNSPECIFIED INGREDIENT
     Indication: PROPHYLAXIS
     Dates: start: 20110909, end: 20110910
  19. ELECTROLYTE SOLUTIONS [Concomitant]
     Active Substance: UNSPECIFIED INGREDIENT
     Indication: PROPHYLAXIS
     Dates: start: 20110909, end: 20110910
  20. ALOSITOL [Concomitant]
     Active Substance: ALLOPURINOL
     Indication: HYPERURICAEMIA
     Dates: start: 20110717, end: 20110902
  21. ELECTROLYTE SOLUTIONS [Concomitant]
     Active Substance: UNSPECIFIED INGREDIENT
     Indication: PROPHYLAXIS
     Dates: start: 20110907, end: 20110908
  22. ACICLOVIR [Concomitant]
     Active Substance: ACYCLOVIR
     Indication: ANTIVIRAL PROPHYLAXIS
     Dates: start: 20110908, end: 20110910
  23. MAGMITT [Concomitant]
     Active Substance: MAGNESIUM OXIDE
     Indication: CONSTIPATION
     Dates: start: 20110720, end: 20110909
  24. ALKERAN [Concomitant]
     Active Substance: MELPHALAN
     Indication: BONE MARROW CONDITIONING REGIMEN
     Dates: start: 20110902, end: 20110903
  25. OMEPRAL [Concomitant]
     Active Substance: OMEPRAZOLE
     Indication: PROPHYLAXIS AGAINST GASTROINTESTINAL ULCER
     Dates: start: 20090828, end: 20110909
  26. FLUDARA [Suspect]
     Active Substance: FLUDARABINE PHOSPHATE
     Indication: LEUKAEMIA
     Route: 065
     Dates: start: 20110829, end: 20110903
  27. GRANISETRON [Concomitant]
     Active Substance: GRANISETRON
     Indication: PROPHYLAXIS OF NAUSEA AND VOMITING
     Dates: start: 20110830, end: 20110903
  28. SOL-MELCORT [Concomitant]
     Active Substance: METHYLPREDNISOLONE SODIUM SUCCINATE
     Indication: ALLERGY PROPHYLAXIS
     Dates: start: 20110901, end: 20110902
  29. AMINO ACIDS [Concomitant]
     Active Substance: AMINO ACIDS
     Indication: PROPHYLAXIS
     Dates: start: 20110909, end: 20110910
  30. DOGMATYL [Concomitant]
     Active Substance: SULPIRIDE
     Indication: DEPRESSION
     Dates: start: 20101213, end: 20110909
  31. SILECE [Concomitant]
     Active Substance: FLUNITRAZEPAM
     Indication: DEPRESSION
     Dates: start: 20110125, end: 20110909
  32. MAXIPIME [Concomitant]
     Active Substance: CEFEPIME HYDROCHLORIDE
     Indication: PROPHYLAXIS
     Dates: start: 20110902, end: 20110909

REACTIONS (10)
  - Pyrexia [Recovering/Resolving]
  - Headache [Not Recovered/Not Resolved]
  - Febrile neutropenia [Not Recovered/Not Resolved]
  - Platelet count decreased [Not Recovered/Not Resolved]
  - Oxygen saturation decreased [Recovering/Resolving]
  - Vomiting [Not Recovered/Not Resolved]
  - Hypomagnesaemia [Not Recovered/Not Resolved]
  - Staphylococcal sepsis [Fatal]
  - White blood cell count decreased [Not Recovered/Not Resolved]
  - Hiccups [Recovering/Resolving]

NARRATIVE: CASE EVENT DATE: 20110901
